FAERS Safety Report 9412153 (Version 4)
Quarter: 2014Q1

REPORT INFORMATION
  Report Type: Spontaneous
  Country: GB (occurrence: GB)
  Receive Date: 20130722
  Receipt Date: 20140211
  Transmission Date: 20141002
  Serious: Yes (Other)
  Sender: FDA-Public Use
  Company Number: GB-NOVOPROD-382771

PATIENT
  Age: 59 Year
  Sex: Male
  Weight: 84 kg

DRUGS (16)
  1. VICTOZA [Suspect]
     Indication: TYPE 2 DIABETES MELLITUS
     Dosage: UNK
     Route: 065
     Dates: start: 20130426, end: 20130428
  2. VICTOZA [Suspect]
     Dosage: UNK
     Route: 065
     Dates: start: 20130516, end: 20130518
  3. VICTOZA [Suspect]
     Dosage: UNK
     Route: 065
     Dates: start: 20130523, end: 20130525
  4. VICTOZA [Suspect]
     Dosage: UNK
     Route: 065
     Dates: start: 20130530, end: 20130601
  5. VICTOZA [Suspect]
     Dosage: UNK
     Route: 065
     Dates: start: 20130606, end: 20130608
  6. ATORVASTATIN [Concomitant]
     Dosage: UNK
     Dates: start: 20130319, end: 20130416
  7. ATORVASTATIN [Concomitant]
     Dosage: UNK
     Route: 065
     Dates: start: 20130514, end: 20130611
  8. GLICLAZIDE [Concomitant]
     Dosage: UNK
     Route: 065
     Dates: start: 20130514, end: 20130526
  9. LANSOPRAZOLE [Concomitant]
     Dosage: UNK
     Route: 065
     Dates: start: 20130524, end: 20130621
  10. METFORMIN [Concomitant]
     Dosage: UNK
     Dates: start: 20130319, end: 20130416
  11. METFORMIN [Concomitant]
     Dosage: UNK
     Route: 065
     Dates: start: 20130514, end: 20130611
  12. PARACETAMOL [Concomitant]
     Dosage: UNK
     Dates: start: 20130319, end: 20130416
  13. PARACETAMOL [Concomitant]
     Dosage: UNK
     Route: 065
     Dates: start: 20130514, end: 20130611
  14. RAMIPRIL [Concomitant]
     Dosage: UNK
     Dates: start: 20130319, end: 20130416
  15. RAMIPRIL [Concomitant]
     Dosage: UNK
     Route: 065
     Dates: start: 20130514, end: 20130611
  16. SILDENAFIL [Concomitant]
     Dosage: UNK
     Route: 065
     Dates: start: 20130514, end: 20130517

REACTIONS (3)
  - Back pain [Recovered/Resolved]
  - Abdominal pain [Recovered/Resolved]
  - Abdominal pain upper [Recovered/Resolved]
